FAERS Safety Report 6685740-6 (Version None)
Quarter: 2010Q2

REPORT INFORMATION
  Report Type: 
  Country: None (occurrence: None)
  Receive Date: 20100419
  Receipt Date: 20100409
  Transmission Date: 20101027
  Serious: Yes (Hospitalization)
  Sender: FDA-Public Use
  Company Number: US-CELGENEUS-163-20785-10021368

PATIENT
  Age: 83 Year
  Sex: Female
  Weight: 45 kg

DRUGS (11)
  1. THALOMID [Suspect]
     Route: 048
     Dates: start: 20090630, end: 20100205
  2. THALOMID [Suspect]
     Route: 048
     Dates: start: 20090630
  3. THALOMID [Suspect]
     Route: 048
     Dates: start: 20100301, end: 20100325
  4. MELPHALAN HYDROCHLORIDE [Suspect]
     Route: 048
     Dates: start: 20090630, end: 20100205
  5. MELPHALAN HYDROCHLORIDE [Suspect]
     Route: 048
     Dates: start: 20090630
  6. MELPHALAN HYDROCHLORIDE [Suspect]
     Route: 048
     Dates: start: 20100301, end: 20100304
  7. PREDNISONE [Suspect]
     Route: 048
     Dates: start: 20090630, end: 20100205
  8. PREDNISONE [Suspect]
     Route: 048
     Dates: start: 20090630
  9. PREDNISONE [Suspect]
     Route: 048
     Dates: start: 20100301, end: 20100304
  10. HYDROCHLOROTHIAZIDE [Suspect]
     Indication: DRUG USE FOR UNKNOWN INDICATION
     Route: 065
  11. ASPIRIN [Concomitant]
     Indication: DRUG USE FOR UNKNOWN INDICATION
     Route: 048

REACTIONS (1)
  - PANCREATIC CARCINOMA [None]
